FAERS Safety Report 17745866 (Version 2)
Quarter: 2021Q3

REPORT INFORMATION
  Report Type: Spontaneous
  Country: US (occurrence: US)
  Receive Date: 20200505
  Receipt Date: 20210721
  Transmission Date: 20211014
  Serious: No
  Sender: FDA-Public Use
  Company Number: US-SA-2020SA116002

PATIENT
  Age: 60 Year
  Sex: Female

DRUGS (1)
  1. DUPIXENT [Suspect]
     Active Substance: DUPILUMAB
     Indication: ASTHMA
     Dosage: 200 MG, QOW
     Route: 058
     Dates: start: 20200306

REACTIONS (4)
  - Headache [Unknown]
  - Nervousness [Unknown]
  - Blood glucose abnormal [Unknown]
  - Asthma [Unknown]

NARRATIVE: CASE EVENT DATE: 2020
